FAERS Safety Report 9510330 (Version 1)
Quarter: 2013Q3

REPORT INFORMATION
  Report Type: Spontaneous
  Country: US (occurrence: US)
  Receive Date: 20130909
  Receipt Date: 20130909
  Transmission Date: 20140515
  Serious: No
  Sender: FDA-Public Use
  Company Number: US-BRISTOL-MYERS SQUIBB COMPANY-17452509

PATIENT
  Age: 10 Year
  Sex: Male
  Weight: 38.09 kg

DRUGS (3)
  1. ABILIFY [Suspect]
     Indication: ATTENTION DEFICIT/HYPERACTIVITY DISORDER
     Dates: start: 201210
  2. FOCALIN [Concomitant]
     Dosage: 1 DF-20MG QAM AND 10MG AT 12:00PM
  3. ZYRTEC [Concomitant]
     Indication: HYPERSENSITIVITY

REACTIONS (2)
  - Weight increased [Unknown]
  - Increased appetite [Unknown]
